FAERS Safety Report 5158858-7 (Version None)
Quarter: 2006Q4

REPORT INFORMATION
  Report Type: 
  Country: None (occurrence: None)
  Receive Date: 20061117
  Receipt Date: 20061108
  Transmission Date: 20070319
  Serious: Yes (Other)
  Sender: FDA-Public Use
  Company Number: 2006137349

PATIENT
  Age: 36 Year
  Sex: Female
  Weight: 62.5964 kg

DRUGS (1)
  1. GEODON [Suspect]
     Indication: SLEEP DISORDER
     Dosage: (60 MG)
     Dates: start: 20061001

REACTIONS (4)
  - DIZZINESS [None]
  - FEELING ABNORMAL [None]
  - OVERDOSE [None]
  - UNRESPONSIVE TO STIMULI [None]
